FAERS Safety Report 18511151 (Version 1)
Quarter: 2020Q4

REPORT INFORMATION
  Report Type: Spontaneous
  Country: US (occurrence: US)
  Receive Date: 20201117
  Receipt Date: 20201117
  Transmission Date: 20210114
  Serious: Yes (Hospitalization)
  Sender: FDA-Public Use
  Company Number: US-STRIDES ARCOLAB LIMITED-2020SP013968

PATIENT
  Age: 39 Year
  Sex: Male

DRUGS (2)
  1. IBUPROFEN. [Suspect]
     Active Substance: IBUPROFEN
     Indication: TOOTHACHE
     Dosage: UNK
     Route: 065
  2. CEFALEXIN [Suspect]
     Active Substance: CEPHALEXIN
     Indication: TOOTHACHE
     Dosage: UNK
     Route: 065

REACTIONS (19)
  - Chest pain [Recovered/Resolved]
  - Lethargy [Recovered/Resolved]
  - Vision blurred [Recovered/Resolved]
  - Dizziness [Recovered/Resolved]
  - Hypoaesthesia [Recovered/Resolved]
  - Rash erythematous [Recovered/Resolved]
  - Leukocytosis [Recovered/Resolved]
  - Rash pruritic [Recovered/Resolved]
  - Confusional state [Recovered/Resolved]
  - Kounis syndrome [Recovered/Resolved]
  - Arteriospasm coronary [Recovered/Resolved]
  - Hypoaesthesia oral [Recovered/Resolved]
  - Vomiting [Recovered/Resolved]
  - Hypotension [Recovered/Resolved]
  - Acute myocardial infarction [Recovered/Resolved]
  - Syncope [Recovered/Resolved]
  - Hypoxia [Recovered/Resolved]
  - Hyperhidrosis [Recovered/Resolved]
  - Hypersensitivity [Recovered/Resolved]
